FAERS Safety Report 8525881-1 (Version None)
Quarter: 2012Q3

REPORT INFORMATION
  Report Type: 
  Country: None (occurrence: None)
  Receive Date: 20120720
  Receipt Date: 20120718
  Transmission Date: 20120928
  Serious: Yes (Death)
  Sender: FDA-Public Use
  Company Number: PHHY2012GB051426

PATIENT
  Age: 43 Year
  Sex: Female
  Weight: 63 kg

DRUGS (7)
  1. MEBEVERINE [Concomitant]
  2. RISPERIDONE [Suspect]
     Indication: SCHIZOPHRENIA
     Dosage: 1 MG, BID
     Route: 048
     Dates: start: 20120105
  3. ANOHEAL [Concomitant]
     Indication: ANAL FISSURE
  4. MIRTAZAPINE [Concomitant]
     Indication: DEPRESSION
     Dosage: 30 MG, QD
     Route: 048
  5. XENICAL [Concomitant]
     Indication: OBESITY
     Dosage: 120 MG, TID
     Route: 048
  6. RISPERDAL [Suspect]
     Indication: SCHIZOPHRENIA
     Dosage: 1 DF, QW2
     Dates: end: 20120104
  7. ACETAMINOPHEN AND CODEINE PHOSPHATE [Concomitant]

REACTIONS (4)
  - SCHIZOPHRENIA [None]
  - SUDDEN DEATH [None]
  - HYPOPHAGIA [None]
  - VOMITING [None]
